FAERS Safety Report 7873698-3 (Version None)
Quarter: 2011Q4

REPORT INFORMATION
  Report Type: 
  Country: None (occurrence: None)
  Receive Date: 20111017
  Receipt Date: 20101221
  Transmission Date: 20120403
  Serious: Yes (Hospitalization)
  Sender: FDA-Public Use
  Company Number: 2011S1000006

PATIENT
  Sex: Female

DRUGS (2)
  1. DARVOCET-N 100 [Suspect]
     Indication: PAIN
     Dosage: (AS REQUIRED),ORAL
     Route: 048
     Dates: start: 19950101, end: 20101101
  2. DARVOCET-N 100 [Suspect]
     Indication: OEDEMA PERIPHERAL
     Dosage: (AS REQUIRED),ORAL
     Route: 048
     Dates: start: 19950101, end: 20101101

REACTIONS (1)
  - MYOCARDIAL INFARCTION [None]
